FAERS Safety Report 5900593-9 (Version None)
Quarter: 2008Q3

REPORT INFORMATION
  Report Type: 
  Country: None (occurrence: None)
  Receive Date: 20080926
  Receipt Date: 20080915
  Transmission Date: 20090109
  Serious: Yes (Hospitalization)
  Sender: FDA-Public Use
  Company Number: VE-PFIZER INC-2008076063

PATIENT
  Sex: Female

DRUGS (5)
  1. CHANTIX [Suspect]
     Indication: SMOKING CESSATION THERAPY
     Route: 048
     Dates: start: 20080902
  2. RALOXIFENE HCL [Concomitant]
     Indication: SLEEP DISORDER
     Route: 048
     Dates: start: 20080301
  3. LENDORMIN [Concomitant]
     Indication: SLEEP DISORDER
     Route: 048
     Dates: start: 20080601
  4. ATACAND HCT [Concomitant]
     Indication: BLOOD PRESSURE
     Dosage: TEXT:16/12.5MG
     Route: 048
     Dates: start: 20080831, end: 20080907
  5. ATACAND [Concomitant]
     Indication: BLOOD PRESSURE
     Route: 048
     Dates: start: 20080908

REACTIONS (5)
  - DIARRHOEA [None]
  - FATIGUE [None]
  - GASTROINTESTINAL INFECTION [None]
  - VOMITING [None]
  - WHITE BLOOD CELL COUNT INCREASED [None]
